FAERS Safety Report 23721681 (Version 2)
Quarter: 2024Q2

REPORT INFORMATION
  Report Type: Spontaneous
  Country: CN (occurrence: CN)
  Receive Date: 20240409
  Receipt Date: 20240419
  Transmission Date: 20240716
  Serious: Yes (Hospitalization)
  Sender: FDA-Public Use
  Company Number: CN-SANOFI-02002081

PATIENT
  Age: 80 Year
  Sex: Male

DRUGS (1)
  1. DUPIXENT [Suspect]
     Active Substance: DUPILUMAB
     Indication: Dermatitis atopic
     Dosage: 2 DF, 1X

REACTIONS (3)
  - Rash erythematous [Recovering/Resolving]
  - Condition aggravated [Recovering/Resolving]
  - Malaise [Unknown]
